FAERS Safety Report 25778886 (Version 3)
Quarter: 2025Q4

REPORT INFORMATION
  Report Type: Spontaneous
  Country: JP (occurrence: JP)
  Receive Date: 20250909
  Receipt Date: 20251210
  Transmission Date: 20260118
  Serious: Yes (Hospitalization)
  Sender: EISAI
  Company Number: JP-Eisai-202416762_LEN-RCC_P_1

PATIENT
  Sex: Female

DRUGS (3)
  1. LENVIMA [Suspect]
     Active Substance: LENVATINIB
     Indication: Renal cell carcinoma
     Route: 048
     Dates: start: 20250305
  2. LENVIMA [Suspect]
     Active Substance: LENVATINIB
     Dosage: DOSE AND FREQUENCY UNKNOWN (DOSE REDUCTIONS OR DRUG SUSPENSION WERE IMPLEMENTED AS APPROPRIATE.)
     Route: 048
     Dates: start: 2025, end: 2025
  3. KEYTRUDA [Suspect]
     Active Substance: PEMBROLIZUMAB
     Indication: Renal cell carcinoma
     Route: 041
     Dates: start: 20250305, end: 202506

REACTIONS (6)
  - Palmar-plantar erythrodysaesthesia syndrome [Unknown]
  - Pyoderma gangrenosum [Recovering/Resolving]
  - Hypertension [Unknown]
  - Hepatic function abnormal [Unknown]
  - Thyroid disorder [Unknown]
  - Skin disorder [Unknown]

NARRATIVE: CASE EVENT DATE: 20250101
